FAERS Safety Report 10080268 (Version 1)
Quarter: 2014Q2

REPORT INFORMATION
  Report Type: Spontaneous
  Country: US (occurrence: US)
  Receive Date: 20140415
  Receipt Date: 20140415
  Transmission Date: 20141212
  Serious: Yes (Hospitalization)
  Sender: FDA-Public Use
  Company Number: PHHY2014US041850

PATIENT
  Age: 25 Year
  Sex: Male

DRUGS (7)
  1. LAMIVUDINE [Suspect]
     Indication: ANTIRETROVIRAL THERAPY
  2. NEVIRAPINE [Suspect]
     Indication: ANTIRETROVIRAL THERAPY
     Dosage: UNK
  3. STAVUDINE [Suspect]
     Indication: ANTIRETROVIRAL THERAPY
  4. TENOFOVIR [Suspect]
     Indication: ANTIRETROVIRAL THERAPY
  5. LOPINAVIR + RITONAVIR [Suspect]
     Indication: ANTIRETROVIRAL THERAPY
  6. SALICYLIC ACID [Concomitant]
     Indication: INFECTION PROPHYLAXIS
     Route: 061
  7. MUPIROCIN [Concomitant]
     Indication: INFECTION PROPHYLAXIS

REACTIONS (18)
  - Immune reconstitution inflammatory syndrome [Recovered/Resolved]
  - Molluscum contagiosum [Recovered/Resolved]
  - Skin lesion [Recovered/Resolved]
  - CD4 lymphocytes increased [Recovered/Resolved]
  - Pyrexia [Recovered/Resolved]
  - Papule [Recovered/Resolved]
  - Bloody discharge [Recovered/Resolved]
  - Bacterial infection [Unknown]
  - Lymphadenopathy [Recovered/Resolved]
  - Skin mass [Recovered/Resolved]
  - Purulent discharge [Recovered/Resolved]
  - Skin discolouration [Recovered/Resolved]
  - Skin papilloma [Recovered/Resolved]
  - Condition aggravated [Recovered/Resolved]
  - Hepatomegaly [Unknown]
  - Virologic failure [Unknown]
  - Post inflammatory pigmentation change [Recovered/Resolved]
  - Scar [Recovered/Resolved]
